FAERS Safety Report 26026659 (Version 1)
Quarter: 2025Q4

REPORT INFORMATION
  Report Type: Spontaneous
  Country: CA (occurrence: CA)
  Receive Date: 20251111
  Receipt Date: 20251111
  Transmission Date: 20260117
  Serious: Yes (Death, Hospitalization)
  Sender: TEVA
  Company Number: CA-TEVA-VS-3390295

PATIENT
  Age: 2 Week
  Sex: Male

DRUGS (3)
  1. OCTREOTIDE [Suspect]
     Active Substance: OCTREOTIDE
     Indication: Noonan syndrome
     Route: 065
  2. ESMOLOL [Suspect]
     Active Substance: ESMOLOL HYDROCHLORIDE
     Indication: Noonan syndrome
     Dosage: 150 MCG/KG
     Route: 065
  3. TRAMETINIB [Suspect]
     Active Substance: TRAMETINIB
     Indication: Noonan syndrome
     Route: 065

REACTIONS (3)
  - Drug ineffective [Fatal]
  - Off label use [Fatal]
  - Drug ineffective for unapproved indication [Fatal]
